FAERS Safety Report 9322428 (Version 2)
Quarter: 2013Q4

REPORT INFORMATION
  Report Type: Spontaneous
  Country: US (occurrence: US)
  Receive Date: 20130531
  Receipt Date: 20131227
  Transmission Date: 20140711
  Serious: Yes (Hospitalization)
  Sender: FDA-Public Use
  Company Number: US-B.I. PHARMACEUTICALS,INC./RIDGEFIELD-2013-BI-14711BP

PATIENT
  Age: 64 Year
  Sex: Male
  Weight: 95.25 kg

DRUGS (9)
  1. PRADAXA [Suspect]
     Indication: ATRIAL FIBRILLATION
     Dates: start: 20110408, end: 20120713
  2. AVODART [Concomitant]
  3. PLAVIX [Concomitant]
  4. CRESTOR [Concomitant]
  5. METOPROLOL [Concomitant]
  6. AMIODARONE [Concomitant]
  7. DIGOXIN [Concomitant]
  8. VIAGRA [Concomitant]
  9. ASPIRIN [Concomitant]

REACTIONS (1)
  - Gastrointestinal haemorrhage [Unknown]
